FAERS Safety Report 7710975-0 (Version None)
Quarter: 2011Q3

REPORT INFORMATION
  Report Type: 
  Country: None (occurrence: None)
  Receive Date: 20110825
  Receipt Date: 20110816
  Transmission Date: 20111222
  Serious: Yes (Other)
  Sender: FDA-Public Use
  Company Number: US-ASTRAZENECA-2011SE10159

PATIENT
  Age: 54 Year
  Sex: Female
  Weight: 68 kg

DRUGS (9)
  1. SEVELLA TITRATE [Concomitant]
     Dosage: TOTAL DAILY DOSE 25MG, BID
     Route: 048
  2. BATRANS [Concomitant]
     Dosage: TOTAL DAILY DOSE 20MCG, Q1H
     Route: 061
  3. SEROQUEL XR [Suspect]
     Indication: BIPOLAR DISORDER
     Route: 048
     Dates: start: 20070101
  4. HYDROCHLOROTHIAZIDE [Concomitant]
     Indication: HYPERTENSION
     Route: 048
  5. ZOCOR [Concomitant]
     Indication: HYPERCHOLESTEROLAEMIA
     Route: 048
  6. PRILOSEC [Suspect]
     Route: 048
  7. SEROQUEL XR [Suspect]
     Route: 048
     Dates: start: 20011101
  8. NEXIUM [Concomitant]
  9. LISINOPRIL [Concomitant]
     Indication: HYPERTENSION
     Route: 048

REACTIONS (3)
  - NEUROPATHY PERIPHERAL [None]
  - DRUG INEFFECTIVE [None]
  - LIMB DISCOMFORT [None]
